FAERS Safety Report 4501568-7 (Version None)
Quarter: 2004Q3

REPORT INFORMATION
  Report Type: 
  Country: None (occurrence: None)
  Receive Date: 20040928
  Receipt Date: 20040823
  Transmission Date: 20050211
  Serious: No
  Sender: FDA-Public Use
  Company Number: 04P-163-0271311-00

PATIENT
  Age: 78 Year
  Sex: Female
  Weight: 59.4212 kg

DRUGS (14)
  1. HUMIRA [Suspect]
     Indication: RHEUMATOID ARTHRITIS
     Dosage: 40 MG, 1 IN 2 WK, SUBCUTANEOUS
     Route: 058
     Dates: start: 20040303, end: 20040428
  2. HUMIRA [Suspect]
     Indication: RHEUMATOID ARTHRITIS
     Dosage: 40 MG, 1 IN 2 WK, SUBCUTANEOUS
     Route: 058
     Dates: start: 20040511, end: 20040609
  3. HUMIRA [Suspect]
     Indication: RHEUMATOID ARTHRITIS
     Dosage: 40 MG, 1 IN 2 WK, SUBCUTANEOUS
     Route: 058
     Dates: start: 20040701
  4. FEXOFENADINE HYDROCHLORIDE [Concomitant]
  5. BIMATOPROST [Concomitant]
  6. METHOTREXATE SODIUM [Concomitant]
  7. METFORMIN [Concomitant]
  8. PREDNISONE [Concomitant]
  9. ATORVASTATIN CALCIUM [Concomitant]
  10. LISINOPRIL [Concomitant]
  11. FOLIC ACID [Concomitant]
  12. ESOMEPRAZOLE [Concomitant]
  13. MULTIVITAMIN [Concomitant]
  14. CALCIUM [Concomitant]

REACTIONS (1)
  - UNEVALUABLE EVENT [None]
